FAERS Safety Report 16204547 (Version 2)
Quarter: 2019Q2

REPORT INFORMATION
  Report Type: Spontaneous
  Country: TH (occurrence: TH)
  Receive Date: 20190416
  Receipt Date: 20190416
  Transmission Date: 20190711
  Serious: Yes (Other)
  Sender: FDA-Public Use
  Company Number: TH-SAOL THERAPEUTICS-2019SAO00120

PATIENT

DRUGS (6)
  1. PREDNISOLONE. [Concomitant]
     Active Substance: PREDNISOLONE
     Indication: LIVER TRANSPLANT
  2. ORAL ANTIVIRAL MEDICATION [Concomitant]
     Indication: ANTIVIRAL PROPHYLAXIS
  3. HEPATITIS B IMMUNE GLOBULIN [Suspect]
     Active Substance: HUMAN HEPATITIS B VIRUS IMMUNE GLOBULIN
     Indication: LIVER TRANSPLANT
     Dosage: 1,200 TO 2,000 IU DURING ANHEPATIC PHASE
     Route: 042
  4. HEPATITIS B IMMUNE GLOBULIN [Suspect]
     Active Substance: HUMAN HEPATITIS B VIRUS IMMUNE GLOBULIN
     Indication: ANTIVIRAL PROPHYLAXIS
     Dosage: 1,200 TO 1,600 IU DAILY FOR 6 DAYS
     Route: 042
  5. CANCINEURIN INHIBITOR [Concomitant]
     Indication: LIVER TRANSPLANT
  6. ORAL ANTIVIRAL MEDICATION [Concomitant]
     Indication: LIVER TRANSPLANT

REACTIONS (2)
  - Hepatitis B surface antigen positive [Unknown]
  - Drug ineffective [Unknown]
